FAERS Safety Report 6032526-1 (Version None)
Quarter: 2009Q1

REPORT INFORMATION
  Report Type: 
  Country: None (occurrence: None)
  Receive Date: 20090109
  Receipt Date: 20081113
  Transmission Date: 20090719
  Serious: No
  Sender: FDA-Public Use
  Company Number: A0756218A

PATIENT
  Age: 59 Year
  Sex: Female

DRUGS (3)
  1. TYKERB [Suspect]
     Indication: BREAST CANCER
     Dosage: 125MG FIVE TIMES PER DAY
     Route: 048
     Dates: start: 20081031
  2. NAVELBINE [Concomitant]
  3. OXYCONTIN [Concomitant]

REACTIONS (1)
  - VOMITING [None]
